FAERS Safety Report 7648775-2 (Version None)
Quarter: 2011Q3

REPORT INFORMATION
  Report Type: 
  Country: None (occurrence: None)
  Receive Date: 20110801
  Receipt Date: 20110727
  Transmission Date: 20111222
  Serious: Yes (Death, Hospitalization, Other)
  Sender: FDA-Public Use
  Company Number: US-AMGEN-USASP2011026071

PATIENT
  Age: 75 Year
  Sex: Male
  Weight: 77.415 kg

DRUGS (14)
  1. DECADRON [Concomitant]
  2. INFLUENZA VACCIN [Concomitant]
     Dosage: UNK
     Dates: start: 20100929
  3. OMEPRAZOLE [Concomitant]
     Dosage: 20 MG, QD
  4. SINGULAIR [Concomitant]
     Dosage: 10 MG, UNK
  5. CALCIUM 600 + D [Concomitant]
  6. TYLENOL P.M. [Concomitant]
  7. JEVITY [Concomitant]
  8. KEPPRA [Concomitant]
     Dosage: 500 MG, BID
  9. MULTIVITAMIN                       /00097801/ [Concomitant]
  10. SYNTHROID [Concomitant]
     Dosage: 50 A?G, UNK
  11. LIPITOR [Concomitant]
     Dosage: 20 MG, UNK
  12. NASONEX [Concomitant]
  13. IVIGLOB-EX [Concomitant]
     Dosage: 10 MG, UNK
  14. NPLATE [Suspect]
     Indication: IDIOPATHIC THROMBOCYTOPENIC PURPURA
     Dosage: 3 A?G/KG, UNK
     Dates: start: 20100104, end: 20110609

REACTIONS (9)
  - CONVULSION [None]
  - OESOPHAGEAL DILATATION [None]
  - PYREXIA [None]
  - CARDIAC ARREST [None]
  - CORONARY ARTERY DISEASE [None]
  - BRAIN INJURY [None]
  - PLATELET DESTRUCTION INCREASED [None]
  - HOSPITALISATION [None]
  - SUBDURAL HAEMATOMA [None]
